FAERS Safety Report 8556109-4 (Version None)
Quarter: 2012Q3

REPORT INFORMATION
  Report Type: 
  Country: None (occurrence: None)
  Receive Date: 20120801
  Receipt Date: 20120725
  Transmission Date: 20120928
  Serious: Yes (Other)
  Sender: FDA-Public Use
  Company Number: US-JNJFOC-20120704424

PATIENT
  Sex: Female
  Weight: 81.65 kg

DRUGS (4)
  1. NUCYNTA ER [Suspect]
     Indication: BACK INJURY
     Dosage: 50 MG 3 TIMES PER DAY
     Route: 048
     Dates: start: 20120702
  2. MORPHINE SULFATE [Suspect]
     Indication: PRODUCT USED FOR UNKNOWN INDICATION
     Route: 065
  3. MORPHINE [Suspect]
     Indication: PRODUCT USED FOR UNKNOWN INDICATION
     Route: 065
  4. NUCYNTA ER [Suspect]
     Indication: BACK PAIN
     Dosage: 50 MG 3 TIMES PER DAY
     Route: 048
     Dates: start: 20120702

REACTIONS (4)
  - HOT FLUSH [None]
  - OEDEMA PERIPHERAL [None]
  - LARYNGITIS [None]
  - WITHDRAWAL SYNDROME [None]
